FAERS Safety Report 6460510-2 (Version None)
Quarter: 2009Q4

REPORT INFORMATION
  Report Type: 
  Country: None (occurrence: None)
  Receive Date: 20091125
  Receipt Date: 20091125
  Transmission Date: 20100525
  Serious: Yes (Life-Threatening, Hospitalization)
  Sender: FDA-Public Use
  Company Number: None

PATIENT
  Age: 58 Year
  Sex: Male
  Weight: 106 kg

DRUGS (9)
  1. WARFARIN SODIUM [Suspect]
     Indication: CARDIAC VALVE PROSTHESIS USER
     Dosage: 7 MG DAILY PO
     Route: 048
  2. OTC NSAIDS [Suspect]
     Indication: PAIN
     Dosage: PO
     Route: 048
  3. GLUCOPHAGE [Concomitant]
  4. MULTI-VITAMIN [Concomitant]
  5. MISCELLANEOUS [Concomitant]
  6. LISINOPRIL [Concomitant]
  7. METOPROLOL TARTRATE [Concomitant]
  8. PRILOSEC [Concomitant]
  9. COUMADIN [Concomitant]

REACTIONS (5)
  - ASTHENIA [None]
  - FAECES DISCOLOURED [None]
  - GASTRIC ULCER HAEMORRHAGE [None]
  - HIATUS HERNIA [None]
  - TREATMENT NONCOMPLIANCE [None]
